FAERS Safety Report 4985577-X (Version None)
Quarter: 2006Q2

REPORT INFORMATION
  Report Type: 
  Country: None (occurrence: None)
  Receive Date: 20060428
  Receipt Date: 20050726
  Transmission Date: 20061013
  Serious: No
  Sender: FDA-Public Use
  Company Number: US-GLAXOSMITHKLINE-A0567717A

PATIENT
  Sex: Male

DRUGS (3)
  1. SEREVENT [Suspect]
     Indication: ASTHMA
     Dosage: 21MCG TWICE PER DAY
     Route: 055
  2. FLONASE [Concomitant]
  3. FLOVENT [Concomitant]

REACTIONS (2)
  - CARDIAC FLUTTER [None]
  - TRANSIENT ISCHAEMIC ATTACK [None]
